FAERS Safety Report 12218774 (Version 2)
Quarter: 2016Q3

REPORT INFORMATION
  Report Type: Spontaneous
  Country: IT (occurrence: IT)
  Receive Date: 20160329
  Receipt Date: 20160712
  Transmission Date: 20161109
  Serious: Yes (Hospitalization)
  Sender: FDA-Public Use
  Company Number: IT-SA-2016SA058847

PATIENT
  Age: 65 Year
  Sex: Female

DRUGS (2)
  1. APIDRA [Suspect]
     Active Substance: INSULIN GLULISINE
     Route: 065
     Dates: start: 20150513, end: 20150513
  2. CITALOPRAM HYDROBROMIDE. [Concomitant]
     Active Substance: CITALOPRAM HYDROBROMIDE

REACTIONS (3)
  - Hypoglycaemia [Unknown]
  - Suicide attempt [Unknown]
  - Drug abuse [Unknown]

NARRATIVE: CASE EVENT DATE: 20150513
